FAERS Safety Report 8599609-3 (Version None)
Quarter: 2012Q3

REPORT INFORMATION
  Report Type: 
  Country: None (occurrence: None)
  Receive Date: 20120816
  Receipt Date: 20120809
  Transmission Date: 20120928
  Serious: Yes (Hospitalization, Other)
  Sender: FDA-Public Use
  Company Number: BR-PFIZER INC-2012198497

PATIENT
  Age: 66 Year
  Sex: Female
  Weight: 59 kg

DRUGS (6)
  1. ALPRAZOLAM [Suspect]
     Indication: FEELING OF RELAXATION
     Dosage: 2 MG (ONE TABLET), 1X/DAY
     Route: 048
     Dates: start: 20090914
  2. TRAMADOL [Concomitant]
     Indication: PAIN
     Dosage: 20 DROPS EVERY 3 HOURS; OR ONE TABLET EVERY 3 HOURS
     Dates: start: 20090101
  3. LOSARTAN [Concomitant]
     Indication: PAIN
     Dosage: 50 MG, 1X/DAY
     Dates: start: 20080101
  4. LYRICA [Suspect]
     Indication: PAIN
     Dosage: 75 MG, 2X/DAY
     Route: 048
     Dates: start: 20100808
  5. LEXAPRO [Concomitant]
     Dosage: 25 MG, 1X/DAY
     Dates: start: 20060101
  6. REUQUINOL [Concomitant]
     Indication: MUSCULOSKELETAL PAIN
     Dosage: 400 MG, 1X/DAY
     Dates: start: 20090101

REACTIONS (1)
  - INFARCTION [None]
